FAERS Safety Report 11382155 (Version 5)
Quarter: 2016Q1

REPORT INFORMATION
  Report Type: Spontaneous
  Country: CA (occurrence: CA)
  Receive Date: 20150814
  Receipt Date: 20160217
  Transmission Date: 20160525
  Serious: Yes (Hospitalization)
  Sender: FDA-Public Use
  Company Number: CA-BRACCO-000992

PATIENT
  Age: 54 Year
  Sex: Female

DRUGS (3)
  1. ISOVUE 300 [Suspect]
     Active Substance: IOPAMIDOL
     Indication: SCAN WITH CONTRAST
     Dosage: INJECTED INTO SUBACROMIAL BURSA
     Route: 014
     Dates: start: 20150723, end: 20150723
  2. XYLOCAINE [Concomitant]
     Active Substance: LIDOCAINE HYDROCHLORIDE
     Dosage: INJECTED INTO SUBMACROMIAL  BURSA
     Dates: start: 20150723, end: 20150723
  3. TRIAMCINOLONE ACETONIDE. [Concomitant]
     Active Substance: TRIAMCINOLONE ACETONIDE
     Dosage: INJECTED INTO SUBACROMIAL BURSA
     Dates: start: 20150723, end: 20150723

REACTIONS (1)
  - Arthritis bacterial [Recovering/Resolving]

NARRATIVE: CASE EVENT DATE: 20150724
